FAERS Safety Report 11684179 (Version 1)
Quarter: 2015Q4

REPORT INFORMATION
  Report Type: Spontaneous
  Country: GB (occurrence: GB)
  Receive Date: 20151029
  Receipt Date: 20151029
  Transmission Date: 20160304
  Serious: Yes (Hospitalization, Other)
  Sender: FDA-Public Use
  Company Number: GB-AUROBINDO-AUR-APL-2015-09660

PATIENT
  Age: 37 Year
  Sex: Male
  Weight: 73 kg

DRUGS (12)
  1. BECONASE AQ [Concomitant]
     Active Substance: BECLOMETHASONE DIPROPIONATE MONOHYDRATE
     Indication: PRODUCT USED FOR UNKNOWN INDICATION
     Dosage: 2 DF, TWO TIMES A DAY, EACH NOSTRIL
     Route: 055
     Dates: start: 20141203
  2. ZUCLOPENTHIXOL [Concomitant]
     Active Substance: ZUCLOPENTHIXOL
     Indication: PRODUCT USED FOR UNKNOWN INDICATION
     Dosage: 1 DF, TWO TIMES A DAY, ONE AT 8AM MORNING AND ONE AT 8PM EVENING
     Route: 065
     Dates: start: 20141203
  3. PHENYTOIN. [Suspect]
     Active Substance: PHENYTOIN
     Indication: PRODUCT USED FOR UNKNOWN INDICATION
     Route: 065
     Dates: start: 20150924
  4. BETAMETHASONE VALERATE. [Concomitant]
     Active Substance: BETAMETHASONE VALERATE
     Indication: SKIN LESION
     Dosage: 1 DF, TWO TIMES A APPLY THINLY TWICE DAILY TO SKIN LESIONS ON LEFT ELBOW (BEFORE EPADERM) FOR 1 WEEK
     Route: 003
     Dates: start: 20150928, end: 20151012
  5. E45 [Concomitant]
     Active Substance: LANOLIN\LIGHT MINERAL OIL\PARAFFIN
     Indication: DRY SKIN
     Dosage: 1 DF, TWO TIMES A DAY
     Route: 065
     Dates: start: 20150715, end: 20150812
  6. EPADERM [Concomitant]
     Active Substance: MINERAL OIL\PETROLATUM\WAX, EMULSIFYING
     Indication: DRY SKIN
     Dosage: APPLY AT LEAST TWICE DAILY
     Route: 065
     Dates: start: 20150923
  7. PARACETAMOL [Concomitant]
     Active Substance: ACETAMINOPHEN
     Indication: PRODUCT USED FOR UNKNOWN INDICATION
     Dosage: 2 DF, FOUR TIMES/DAY
     Route: 065
     Dates: start: 20150923
  8. SODIUM VALPROATE [Concomitant]
     Active Substance: VALPROATE SODIUM
     Indication: PRODUCT USED FOR UNKNOWN INDICATION
     Dosage: 5 DF, TWO TIMES A DAY
     Route: 065
     Dates: start: 20141203
  9. CLOBAZAM [Concomitant]
     Active Substance: CLOBAZAM
     Indication: PRODUCT USED FOR UNKNOWN INDICATION
     Dosage: TAKE ONE TABLET WHEN REQUIRED MAXIMUN TWO TABLETS
     Route: 065
     Dates: start: 20141203
  10. CLOPIXOL                           /00876702/ [Concomitant]
     Active Substance: ZUCLOPENTHIXOL ACETATE
     Indication: PRODUCT USED FOR UNKNOWN INDICATION
     Dosage: 1 DF, TWO TIMES A DAY
     Route: 065
     Dates: start: 20141203
  11. LAMOTRIGINE. [Concomitant]
     Active Substance: LAMOTRIGINE
     Indication: PRODUCT USED FOR UNKNOWN INDICATION
     Dosage: 5 DF, 2 AT 08:00, 2 AT 17:00, 1 AT 20:00
     Route: 065
     Dates: start: 20150616
  12. TEGRETOL [Concomitant]
     Active Substance: CARBAMAZEPINE
     Indication: PRODUCT USED FOR UNKNOWN INDICATION
     Dosage: 300 MG, TWO TIMES A DAY
     Route: 065
     Dates: start: 20150616

REACTIONS (1)
  - Neuropsychiatric syndrome [Recovered/Resolved]

NARRATIVE: CASE EVENT DATE: 20150930
